FAERS Safety Report 8179901-7 (Version None)
Quarter: 2012Q1

REPORT INFORMATION
  Report Type: 
  Country: None (occurrence: None)
  Receive Date: 20120229
  Receipt Date: 20120213
  Transmission Date: 20120608
  Serious: Yes (Other)
  Sender: FDA-Public Use
  Company Number: 2012020172

PATIENT
  Sex: Female
  Weight: 65.7716 kg

DRUGS (18)
  1. NIACIN [Concomitant]
  2. LIDODERM [Concomitant]
  3. LEVSIN PB [Suspect]
     Indication: CYSTITIS INTERSTITIAL
     Dosage: SEE IMAGE
     Route: 060
     Dates: start: 19940101, end: 20100101
  4. LEVSIN PB [Suspect]
     Indication: CYSTITIS INTERSTITIAL
     Dosage: SEE IMAGE
     Route: 060
     Dates: start: 20120117
  5. LEVSIN PB [Suspect]
     Indication: CYSTITIS INTERSTITIAL
     Dosage: SEE IMAGE
     Route: 060
     Dates: start: 20100101, end: 20120101
  6. REMERON [Concomitant]
  7. PROTONIX [Concomitant]
  8. CARISOPRODOL [Suspect]
     Indication: MUSCLE SPASMS
     Dosage: (3 IN 1 D),ORAL
     Route: 048
  9. DURAGESIC-100 [Concomitant]
  10. CREON (PANCRELIPASE) [Concomitant]
  11. ZOLOFT [Concomitant]
  12. PHENERGAN [Concomitant]
  13. ATIVAN [Concomitant]
  14. CARAFATE [Concomitant]
  15. ALLEGRA [Concomitant]
  16. SINGULAIR [Concomitant]
  17. PERCOCET [Concomitant]
  18. URISPAS (FLAVOXATE) [Concomitant]

REACTIONS (4)
  - SUICIDE ATTEMPT [None]
  - ECONOMIC PROBLEM [None]
  - URINARY INCONTINENCE [None]
  - POLLAKIURIA [None]
